FAERS Safety Report 4878644-2 (Version None)
Quarter: 2005Q4

REPORT INFORMATION
  Report Type: 
  Country: None (occurrence: None)
  Receive Date: 20051209
  Receipt Date: 20050509
  Transmission Date: 20060501
  Serious: Yes (Death, Other)
  Sender: FDA-Public Use
  Company Number: USA-2005-0019455

PATIENT
  Age: 30 Year
  Sex: Male

DRUGS (4)
  1. OXYCONTIN [Suspect]
     Indication: PAIN
  2. XANAX [Suspect]
     Indication: ANXIETY
  3. PERCOCET [Suspect]
     Dates: start: 20041014, end: 20041107
  4. ALPRAZOLAM [Suspect]
     Dates: start: 20041014, end: 20041107

REACTIONS (2)
  - DRUG ABUSER [None]
  - MULTIPLE DRUG OVERDOSE [None]
